FAERS Safety Report 23586836 (Version 2)
Quarter: 2024Q1

REPORT INFORMATION
  Report Type: Spontaneous
  Country: US (occurrence: US)
  Receive Date: 20240301
  Receipt Date: 20240308
  Transmission Date: 20240410
  Serious: No
  Sender: FDA-Public Use
  Company Number: US-PFIZER INC-202400053057

PATIENT
  Sex: Female

DRUGS (1)
  1. CUPRIC CHLORIDE [Suspect]
     Active Substance: CUPRIC CHLORIDE
     Dosage: 1.25MG/25ML/HR
     Route: 042

REACTIONS (3)
  - Infusion related reaction [Unknown]
  - Infusion site pain [Unknown]
  - Infusion site discomfort [Unknown]
